FAERS Safety Report 9736754 (Version 1)
Quarter: 2013Q4

REPORT INFORMATION
  Report Type: Spontaneous
  Country: US (occurrence: US)
  Receive Date: 20131206
  Receipt Date: 20131206
  Transmission Date: 20140711
  Serious: No
  Sender: FDA-Public Use
  Company Number: US-BIOGENIDEC-2013BI088549

PATIENT
  Sex: Male

DRUGS (13)
  1. TECFIDERA [Suspect]
     Indication: PRODUCT USED FOR UNKNOWN INDICATION
     Route: 048
  2. TECFIDERA [Suspect]
     Indication: PRODUCT USED FOR UNKNOWN INDICATION
     Route: 048
  3. ASPIRIN [Concomitant]
  4. TIZANIDINE [Concomitant]
  5. VITAMIN D [Concomitant]
  6. BISOPROL [Concomitant]
  7. FINASTERIDE [Concomitant]
  8. CENTRUM SILVER [Concomitant]
  9. SIMVASTATIN [Concomitant]
  10. ALLOPURINOL [Concomitant]
  11. FLOMAX [Concomitant]
  12. OXYBUTYNIN [Concomitant]
  13. BENADRYL [Concomitant]

REACTIONS (3)
  - Diarrhoea [Unknown]
  - Pruritus [Unknown]
  - Erythema [Unknown]
